FAERS Safety Report 4944797-0 (Version None)
Quarter: 2006Q1

REPORT INFORMATION
  Report Type: 
  Country: None (occurrence: None)
  Receive Date: 20060315
  Receipt Date: 20051013
  Transmission Date: 20060701
  Serious: Yes (Hospitalization)
  Sender: FDA-Public Use
  Company Number: PR-MERCK-0510USA07397

PATIENT
  Age: 75 Year
  Sex: Female
  Weight: 77 kg

DRUGS (23)
  1. VIOXX [Suspect]
     Indication: ARTHRALGIA
     Route: 048
     Dates: start: 19990101, end: 20040101
  2. HYDRODIURIL [Concomitant]
     Indication: BLOOD PRESSURE
     Route: 048
     Dates: start: 20000907
  3. ATENOLOL [Concomitant]
     Indication: HYPERTENSION
     Route: 048
     Dates: start: 20010129, end: 20021101
  4. COZAAR [Concomitant]
     Route: 048
  5. VERAPAMIL MSD LP [Concomitant]
     Indication: HYPERTENSION
     Route: 048
     Dates: start: 20010718, end: 20021001
  6. CLONIDINE [Concomitant]
     Indication: HYPERTENSION
     Route: 065
     Dates: start: 20010718, end: 20021101
  7. FUROSEMIDE [Concomitant]
     Indication: OEDEMA
     Route: 065
     Dates: start: 20011222, end: 20020823
  8. NEURONTIN [Concomitant]
     Indication: PAIN
     Route: 065
     Dates: start: 20020518, end: 20020823
  9. METOPROLOL [Concomitant]
     Indication: HYPERTENSION
     Route: 065
     Dates: start: 20021207
  10. VASOTEC RPD [Concomitant]
     Indication: BLOOD PRESSURE
     Route: 048
     Dates: start: 20021207
  11. PLAVIX [Concomitant]
     Indication: HEADACHE
     Route: 065
     Dates: start: 20021207, end: 20031011
  12. PLAVIX [Concomitant]
     Indication: PROPHYLAXIS
     Route: 065
     Dates: start: 20021207, end: 20031011
  13. PRAVACHOL [Concomitant]
     Indication: BLOOD CHOLESTEROL
     Route: 065
     Dates: start: 20021207, end: 20030421
  14. CELEBREX [Concomitant]
     Indication: ANALGESIC INTERVENTION SUPPORTIVE THERAPY
     Route: 065
     Dates: start: 20010718, end: 20021001
  15. OXYCODONE [Concomitant]
     Route: 065
  16. CARISOPRODOL [Concomitant]
     Indication: MUSCLE RELAXANT THERAPY
     Route: 065
     Dates: start: 20030224, end: 20040413
  17. NABUMETONE [Concomitant]
     Route: 065
  18. ULTRACET [Concomitant]
     Indication: ANALGESIC EFFECT
     Route: 065
     Dates: start: 20021115, end: 20030322
  19. ASPIRIN [Concomitant]
     Indication: ANALGESIC INTERVENTION SUPPORTIVE THERAPY
     Route: 065
     Dates: start: 20021207, end: 20030107
  20. ASPIRIN [Concomitant]
     Indication: ANTICOAGULANT THERAPY
     Route: 065
     Dates: start: 20021207, end: 20030107
  21. ISOSORBIDE [Concomitant]
     Indication: ANGINA PECTORIS
     Route: 065
     Dates: start: 20021207
  22. CATAPRES [Concomitant]
     Route: 065
     Dates: start: 20010718, end: 20021101
  23. PROZAC [Concomitant]
     Route: 065
     Dates: start: 20020101

REACTIONS (15)
  - ANGINA PECTORIS [None]
  - BLOOD CHOLESTEROL [None]
  - DEPRESSION [None]
  - DYSPEPSIA [None]
  - EMOTIONAL DISORDER [None]
  - HEADACHE [None]
  - HEART RATE IRREGULAR [None]
  - HERNIA [None]
  - HYPERTENSION [None]
  - JOINT ARTHROPLASTY [None]
  - MYOCARDIAL INFARCTION [None]
  - OEDEMA [None]
  - PALPITATIONS [None]
  - SICKLE CELL ANAEMIA [None]
  - STRESS [None]
